FAERS Safety Report 21700999 (Version 2)
Quarter: 2023Q1

REPORT INFORMATION
  Report Type: Report from Study
  Country: CA (occurrence: CA)
  Receive Date: 20221208
  Receipt Date: 20230216
  Transmission Date: 20230418
  Serious: Yes (Hospitalization)
  Sender: FDA-Public Use
  Company Number: CA-OTSUKA-2022_053786

PATIENT
  Sex: Female

DRUGS (1)
  1. CEDAZURIDINE\DECITABINE [Suspect]
     Active Substance: CEDAZURIDINE\DECITABINE
     Indication: Myelodysplastic syndrome
     Dosage: UNK
     Route: 065
     Dates: start: 20221031, end: 202211

REACTIONS (6)
  - Full blood count abnormal [Unknown]
  - Eye haemorrhage [Unknown]
  - Hypotension [Unknown]
  - Renal failure [Unknown]
  - Coronavirus infection [Unknown]
  - Pyrexia [Unknown]
